FAERS Safety Report 11167671 (Version 1)
Quarter: 2015Q2

REPORT INFORMATION
  Report Type: Spontaneous
  Country: US (occurrence: None)
  Receive Date: 20150515
  Receipt Date: 20150515
  Transmission Date: 20150821
  Serious: Yes (Other)
  Sender: FDA-Public Use
  Company Number: 2014023260

PATIENT
  Age: 61 Year
  Sex: Female
  Weight: 49.9 kg

DRUGS (3)
  1. PENTASA [Concomitant]
     Active Substance: MESALAMINE
  2. CIMZIA [Suspect]
     Active Substance: CERTOLIZUMAB PEGOL
     Indication: CROHN^S DISEASE
     Route: 042
     Dates: start: 201410
  3. ENTOCORT (BUDESONIDE) [Concomitant]

REACTIONS (2)
  - Herpes zoster [None]
  - Influenza [None]

NARRATIVE: CASE EVENT DATE: 201412
